FAERS Safety Report 4986777-5 (Version None)
Quarter: 2006Q2

REPORT INFORMATION
  Report Type: 
  Country: None (occurrence: None)
  Receive Date: 20060428
  Receipt Date: 20060302
  Transmission Date: 20061013
  Serious: Yes (Death, Other)
  Sender: FDA-Public Use
  Company Number: US-MERCK-0603USA00528

PATIENT
  Age: 76 Year
  Sex: Female

DRUGS (1)
  1. VIOXX [Suspect]
     Indication: ARTHRITIS
     Route: 048

REACTIONS (5)
  - BRAIN CANCER METASTATIC [None]
  - BREAST CANCER [None]
  - CEREBROVASCULAR ACCIDENT [None]
  - COLON CANCER [None]
  - GASTROINTESTINAL HAEMORRHAGE [None]
